FAERS Safety Report 7628786-3 (Version None)
Quarter: 2011Q3

REPORT INFORMATION
  Report Type: 
  Country: None (occurrence: None)
  Receive Date: 20110722
  Receipt Date: 20110720
  Transmission Date: 20111222
  Serious: Yes (Other)
  Sender: FDA-Public Use
  Company Number: DZ-PFIZER INC-2011165706

PATIENT
  Age: 27 Year
  Sex: Female

DRUGS (5)
  1. LYRICA [Suspect]
     Indication: RADICULOPATHY
  2. LYRICA [Suspect]
     Indication: SCIATICA
  3. DICLOFENAC POTASSIUM [Concomitant]
     Dosage: UNK
  4. LYRICA [Suspect]
     Indication: NEURALGIA
     Dosage: 150 MG, 1X/DAY
     Route: 048
     Dates: start: 20110705, end: 20110705
  5. PARAMOL [Concomitant]
     Indication: ANALGESIC THERAPY
     Dosage: 1 G, 1X/DAY

REACTIONS (2)
  - MUTISM [None]
  - SPEECH DISORDER [None]
